FAERS Safety Report 7717355-2 (Version None)
Quarter: 2011Q3

REPORT INFORMATION
  Report Type: 
  Country: None (occurrence: None)
  Receive Date: 20110830
  Receipt Date: 20110820
  Transmission Date: 20111222
  Serious: Yes (Hospitalization)
  Sender: FDA-Public Use
  Company Number: US-JNJFOC-20110702610

PATIENT
  Sex: Male
  Weight: 80.74 kg

DRUGS (13)
  1. FOSAMAX [Concomitant]
     Indication: BONE DISORDER
  2. FLOMAX [Concomitant]
     Indication: PROSTATOMEGALY
     Route: 048
  3. WARFARIN SODIUM [Concomitant]
     Indication: ANTICOAGULANT THERAPY
     Dosage: 7.5MG/TABLET/7.5MG/ON M-W-F AND 5MG/TABLET/5MG/ON SAT-SUN-T-TH
  4. LOVAZA [Concomitant]
  5. OXYBUTYNIN [Concomitant]
     Indication: URINARY TRACT DISORDER
  6. UROCIT-K [Concomitant]
     Indication: PROSTATOMEGALY
     Route: 048
  7. REMICADE [Suspect]
     Indication: RHEUMATOID ARTHRITIS
     Route: 042
     Dates: start: 20090101
  8. TRAZODONE HYDROCHLORIDE [Concomitant]
     Indication: SLEEP DISORDER THERAPY
     Route: 048
  9. VITAMIN B-12 [Concomitant]
  10. CALCIUM AND VITAMIN D [Concomitant]
  11. ZITHROMAX [Suspect]
     Indication: PNEUMONIA
  12. PREDNISONE [Concomitant]
     Indication: RHEUMATOID ARTHRITIS
     Route: 048
  13. ROCEPHIN [Suspect]
     Indication: PNEUMONIA

REACTIONS (4)
  - INSOMNIA [None]
  - STEVENS-JOHNSON SYNDROME [None]
  - PNEUMONIA [None]
  - ABNORMAL LOSS OF WEIGHT [None]
